FAERS Safety Report 4751981-8 (Version None)
Quarter: 2005Q3

REPORT INFORMATION
  Report Type: 
  Country: None (occurrence: None)
  Receive Date: 20050822
  Receipt Date: 20050628
  Transmission Date: 20060218
  Serious: No
  Sender: FDA-Public Use
  Company Number: PHEH2005US07448

PATIENT
  Age: 58 Year
  Sex: Male
  Weight: 54.9 kg

DRUGS (3)
  1. ZELNORM [Suspect]
     Dosage: 1/2 6 MG QD, ORAL;  1/2 6 MG BID, ORAL;  6 MG, QD, ORAL;  1/2 6 MG, ORAL
     Route: 048
     Dates: start: 20050613, end: 20050615
  2. ZELNORM [Suspect]
     Dosage: 1/2 6 MG QD, ORAL;  1/2 6 MG BID, ORAL;  6 MG, QD, ORAL;  1/2 6 MG, ORAL
     Route: 048
     Dates: start: 20050616, end: 20050618
  3. ZELNORM [Suspect]
     Dosage: 1/2 6 MG QD, ORAL;  1/2 6 MG BID, ORAL;  6 MG, QD, ORAL;  1/2 6 MG, ORAL
     Route: 048
     Dates: start: 20050619

REACTIONS (1)
  - OEDEMA PERIPHERAL [None]
